FAERS Safety Report 14845377 (Version 1)
Quarter: 2018Q2

REPORT INFORMATION
  Report Type: Spontaneous
  Country: IT (occurrence: IT)
  Receive Date: 20180504
  Receipt Date: 20180504
  Transmission Date: 20180711
  Serious: Yes (Other)
  Sender: FDA-Public Use
  Company Number: IT-TEVA-2018-IT-884225

PATIENT
  Sex: Female

DRUGS (1)
  1. IBUPROFEN AUROBINDO 600MG [Suspect]
     Active Substance: IBUPROFEN
     Indication: PAIN
     Route: 048

REACTIONS (2)
  - Eye swelling [Unknown]
  - Urinary retention [Unknown]
